FAERS Safety Report 7299478-8 (Version None)
Quarter: 2011Q1

REPORT INFORMATION
  Report Type: 
  Country: None (occurrence: None)
  Receive Date: 20110217
  Receipt Date: 20110210
  Transmission Date: 20110831
  Serious: Yes (Other)
  Sender: FDA-Public Use
  Company Number: US-B.I. PHARMACEUTICALS,INC./RIDGEFIELD-2011-BP-02626BP

PATIENT
  Age: 61 Year
  Sex: Male

DRUGS (6)
  1. CARVEDILOL [Suspect]
  2. SIMVASTATIN [Concomitant]
     Indication: BLOOD CHOLESTEROL INCREASED
  3. NORTRIPTOLENE [Concomitant]
     Indication: MIGRAINE
  4. LISINOPRIL [Concomitant]
     Indication: HYPERTENSION
  5. PRADAXA [Suspect]
     Indication: ATRIAL FIBRILLATION
     Dosage: 300 MG
     Route: 048
     Dates: start: 20101203
  6. CARTIA XT [Suspect]

REACTIONS (1)
  - HEART RATE INCREASED [None]
